FAERS Safety Report 6160607-0 (Version None)
Quarter: 2009Q2

REPORT INFORMATION
  Report Type: 
  Country: None (occurrence: None)
  Receive Date: 20090420
  Receipt Date: 20090413
  Transmission Date: 20091009
  Serious: Yes (Disabling)
  Sender: FDA-Public Use
  Company Number: US-B.I. PHARMACEUTICALS,INC./RIDGEFIELD-2009-BP-04641BP

PATIENT
  Sex: Male

DRUGS (4)
  1. SPIRIVA [Suspect]
  2. CHANTIX [Suspect]
     Indication: SMOKING CESSATION THERAPY
     Dates: start: 20090401
  3. NEURONTIN [Suspect]
  4. REMERON [Concomitant]

REACTIONS (3)
  - HEAD INJURY [None]
  - SPINAL COLUMN STENOSIS [None]
  - TOOTH DISORDER [None]
